FAERS Safety Report 4455774-0 (Version None)
Quarter: 2004Q3

REPORT INFORMATION
  Report Type: 
  Country: None (occurrence: None)
  Receive Date: 20040917
  Receipt Date: 20040909
  Transmission Date: 20050211
  Serious: Yes (Death)
  Sender: FDA-Public Use
  Company Number: 200410464BFR

PATIENT
  Age: 83 Year
  Sex: Male

DRUGS (2)
  1. MOXIFLOXACIN HYDROCHLORIDE [Suspect]
     Indication: BRONCHITIS
  2. MOXIFLOXACIN HYDROCHLORIDE [Suspect]
     Indication: SUPERINFECTION

REACTIONS (1)
  - SUDDEN DEATH [None]
